FAERS Safety Report 5326159-X (Version None)
Quarter: 2007Q2

REPORT INFORMATION
  Report Type: 
  Country: None (occurrence: None)
  Receive Date: 20070516
  Receipt Date: 20070507
  Transmission Date: 20071010
  Serious: Yes (Hospitalization)
  Sender: FDA-Public Use
  Company Number: US-AVENTIS-200712616US

PATIENT
  Sex: Male

DRUGS (7)
  1. KETEK [Suspect]
     Indication: BRONCHITIS
     Dosage: DOSE: UNK
     Route: 048
     Dates: start: 20060301, end: 20060101
  2. LOSARTAN POSTASSIUM [Concomitant]
     Dates: start: 20070301
  3. GLYBURIDE [Concomitant]
  4. METOPROLOL SUCCINATE [Concomitant]
  5. VITAMIN CAP [Concomitant]
     Dosage: DOSE: UNK
  6. COSOPT                             /01419801/ [Concomitant]
     Dosage: DOSE: UNK
  7. FLOMAX [Concomitant]

REACTIONS (22)
  - ABDOMINAL PAIN [None]
  - ABDOMINAL PAIN UPPER [None]
  - ALANINE AMINOTRANSFERASE INCREASED [None]
  - ASPARTATE AMINOTRANSFERASE INCREASED [None]
  - BILIRUBIN CONJUGATED INCREASED [None]
  - BLOOD ALBUMIN DECREASED [None]
  - BLOOD BILIRUBIN INCREASED [None]
  - BLOOD CREATININE INCREASED [None]
  - CARBON DIOXIDE DECREASED [None]
  - CHILLS [None]
  - DECREASED APPETITE [None]
  - DEHYDRATION [None]
  - DIARRHOEA [None]
  - GALLBLADDER DISORDER [None]
  - INTERNATIONAL NORMALISED RATIO DECREASED [None]
  - JAUNDICE [None]
  - LIPASE INCREASED [None]
  - LIVER INJURY [None]
  - NAUSEA [None]
  - PYREXIA [None]
  - SPLENOMEGALY [None]
  - WEIGHT DECREASED [None]
